FAERS Safety Report 12581292 (Version 3)
Quarter: 2018Q4

REPORT INFORMATION
  Report Type: Report from Study
  Country: US (occurrence: US)
  Receive Date: 20160721
  Receipt Date: 20181102
  Transmission Date: 20190204
  Serious: Yes (Hospitalization)
  Sender: FDA-Public Use
  Company Number: US-ACTELION-A-NJ2016-139271

PATIENT
  Age: 47 Year
  Sex: Female

DRUGS (17)
  1. RIOCIGUAT. [Concomitant]
     Active Substance: RIOCIGUAT
     Dosage: UNK
     Dates: end: 20180925
  2. UPTRAVI [Suspect]
     Active Substance: SELEXIPAG
     Dosage: 1200 MCG, BID
     Route: 048
  3. POTASSIUM [Concomitant]
     Active Substance: POTASSIUM
  4. MIRTAZAPINE. [Concomitant]
     Active Substance: MIRTAZAPINE
  5. MIDODRINE [Concomitant]
     Active Substance: MIDODRINE
  6. CITALOPRAM [Concomitant]
     Active Substance: CITALOPRAM HYDROBROMIDE
  7. DIGOXIN. [Concomitant]
     Active Substance: DIGOXIN
  8. UPTRAVI [Suspect]
     Active Substance: SELEXIPAG
     Indication: PULMONARY ARTERIAL HYPERTENSION
     Dosage: 1600 MCG, BID
     Route: 048
     Dates: end: 20180925
  9. VERAPAMIL [Concomitant]
     Active Substance: VERAPAMIL HYDROCHLORIDE
  10. LORAZEPAM. [Concomitant]
     Active Substance: LORAZEPAM
  11. VITAMIN D [Concomitant]
     Active Substance: CHOLECALCIFEROL
  12. UPTRAVI [Suspect]
     Active Substance: SELEXIPAG
     Dosage: UNK
     Route: 048
     Dates: start: 20160712
  13. FUROSEMIDE. [Concomitant]
     Active Substance: FUROSEMIDE
  14. PRADAXA [Concomitant]
     Active Substance: DABIGATRAN ETEXILATE MESYLATE
  15. MAGNESIUM [Concomitant]
     Active Substance: MAGNESIUM
  16. OPSUMIT [Suspect]
     Active Substance: MACITENTAN
     Indication: PULMONARY ARTERIAL HYPERTENSION
     Dosage: 10 MG, QD
     Route: 048
     Dates: start: 20160818
  17. PANTOPRAZOLE [Concomitant]
     Active Substance: PANTOPRAZOLE

REACTIONS (6)
  - Atrial flutter [Unknown]
  - Heart rate increased [Unknown]
  - Hypotension [Unknown]
  - Respiratory arrest [Unknown]
  - Endarterectomy [Recovering/Resolving]
  - Cardioversion [Unknown]

NARRATIVE: CASE EVENT DATE: 201709
